FAERS Safety Report 6088631-7 (Version None)
Quarter: 2009Q1

REPORT INFORMATION
  Report Type: 
  Country: None (occurrence: None)
  Receive Date: 20090219
  Receipt Date: 20090206
  Transmission Date: 20090719
  Serious: Yes (Hospitalization, Disabling)
  Sender: FDA-Public Use
  Company Number: GXKR2009GB01665

PATIENT
  Age: 86 Year
  Sex: Female

DRUGS (10)
  1. TRAMADOL HCL [Suspect]
     Indication: PAIN
     Dosage: 100 MG, ORAL
     Route: 048
  2. PERHEXILINE (PERHEXILINE) [Suspect]
     Indication: LEFT VENTRICULAR FAILURE
     Dosage: ORAL
     Route: 048
     Dates: start: 20050101
  3. ACETYLSALICYLIC ACID SRT [Concomitant]
  4. BISOPROLOL (BISOPROLOL) [Concomitant]
  5. CLOPIDOGREL [Concomitant]
  6. CODEINE PHOSPHATE AND ACETAMINOPHEN [Concomitant]
  7. ISOSORBIDE MONONITRATE [Concomitant]
  8. LANSOPRAZOLE [Concomitant]
  9. SIMVASTATIN [Concomitant]
  10. VALSARTAN [Concomitant]

REACTIONS (3)
  - DYSKINESIA [None]
  - MOBILITY DECREASED [None]
  - SPEECH DISORDER [None]
